FAERS Safety Report 16095358 (Version 2)
Quarter: 2019Q3

REPORT INFORMATION
  Report Type: Other
  Country: CA (occurrence: CA)
  Receive Date: 20190320
  Receipt Date: 20190819
  Transmission Date: 20191004
  Serious: Yes (Other)
  Sender: FDA-Public Use
  Company Number: CA-BECTON DICKINSON-2019BDN00109

PATIENT

DRUGS (16)
  1. ASA [Suspect]
     Active Substance: ASPIRIN
     Route: 064
  2. VITAMIN A [Suspect]
     Active Substance: VITAMIN A
     Route: 064
  3. SILDENAFIL. [Suspect]
     Active Substance: SILDENAFIL
     Route: 064
  4. DEXPANTHENOL; ERGOCALCIFEROL; FOLIC ACID; NICOTINAMIDE; RIBOFLAVIN; TH [Suspect]
     Active Substance: FOLIC ACID\VITAMINS
     Route: 064
  5. INSULIN [Suspect]
     Active Substance: INSULIN NOS
     Route: 064
  6. FOLIC ACID. [Suspect]
     Active Substance: FOLIC ACID
     Route: 064
  7. VITAMIN B3 [Suspect]
     Active Substance: NIACIN
     Route: 064
  8. CHLORHEXIDINE [Suspect]
     Active Substance: CHLORHEXIDINE
     Route: 064
  9. ERGOCALCIFEROL. [Suspect]
     Active Substance: ERGOCALCIFEROL
     Route: 064
  10. METHYLDOPA. [Suspect]
     Active Substance: METHYLDOPA
     Route: 064
  11. DICLECTIN [Suspect]
     Active Substance: DOXYLAMINE SUCCINATE\PYRIDOXINE HYDROCHLORIDE
     Route: 064
  12. VITAMIN B1 [Suspect]
     Active Substance: THIAMINE HYDROCHLORIDE
     Route: 064
  13. VITAMIN C [Suspect]
     Active Substance: ASCORBIC ACID
     Route: 064
  14. NIFEDIPINE. [Suspect]
     Active Substance: NIFEDIPINE
     Route: 064
  15. METFORMIN [Suspect]
     Active Substance: METFORMIN HYDROCHLORIDE
     Route: 064
  16. VITAMIN B2 [Suspect]
     Active Substance: RIBOFLAVIN
     Route: 064

REACTIONS (2)
  - Premature baby [Unknown]
  - Foetal exposure during pregnancy [Recovered/Resolved]
